FAERS Safety Report 9965795 (Version 1)
Quarter: 2014Q1

REPORT INFORMATION
  Report Type: Report from Study
  Country: US (occurrence: US)
  Receive Date: 20140305
  Receipt Date: 20140305
  Transmission Date: 20141002
  Serious: No
  Sender: FDA-Public Use
  Company Number: US-ABBVIE-13P-163-1123513-00

PATIENT
  Age: 67 Year
  Sex: Female

DRUGS (8)
  1. HUMIRA [Suspect]
     Indication: CROHN^S DISEASE
     Dates: start: 20130426
  2. LISINOPRIL [Concomitant]
     Indication: BLOOD PRESSURE MANAGEMENT
     Dosage: BID - ONLY IF BP }125
  3. NORVASC [Concomitant]
     Indication: BLOOD PRESSURE MANAGEMENT
     Dosage: BID - ONLY IF BP }125
  4. LABETALOL [Concomitant]
     Indication: BLOOD PRESSURE MANAGEMENT
     Dosage: BID - ONLY IF BP }125
  5. ASACOL [Concomitant]
     Indication: PRODUCT USED FOR UNKNOWN INDICATION
  6. VITAMIN C [Concomitant]
     Indication: PRODUCT USED FOR UNKNOWN INDICATION
  7. IRON [Concomitant]
     Indication: ANAEMIA
  8. FOLIC ACID [Concomitant]
     Indication: PRODUCT USED FOR UNKNOWN INDICATION

REACTIONS (1)
  - Diarrhoea [Not Recovered/Not Resolved]
